FAERS Safety Report 15111353 (Version 2)
Quarter: 2018Q3

REPORT INFORMATION
  Report Type: Spontaneous
  Country: JP (occurrence: JP)
  Receive Date: 20180705
  Receipt Date: 20180710
  Transmission Date: 20181010
  Serious: No
  Sender: FDA-Public Use
  Company Number: JP-EISAI MEDICAL RESEARCH-EC-2018-041170

PATIENT
  Age: 65 Year
  Sex: Female

DRUGS (22)
  1. HOKUNALIN [Concomitant]
     Active Substance: TULOBUTEROL
     Indication: ASTHMA
     Dosage: UNKNOWN
     Route: 065
     Dates: end: 20180129
  2. E KEPPRA [Concomitant]
     Active Substance: LEVETIRACETAM
     Route: 048
     Dates: start: 20180110, end: 20180116
  3. HALCION [Concomitant]
     Active Substance: TRIAZOLAM
     Route: 065
     Dates: start: 20180201, end: 20180208
  4. ALEVIATIN [Concomitant]
     Active Substance: PHENYTOIN SODIUM
     Indication: PRODUCT USED FOR UNKNOWN INDICATION
     Route: 065
     Dates: start: 20180110, end: 20180115
  5. FYCOMPA [Suspect]
     Active Substance: PERAMPANEL
     Indication: SEIZURE
     Route: 048
     Dates: start: 20180110, end: 20180113
  6. FYCOMPA [Suspect]
     Active Substance: PERAMPANEL
     Route: 048
     Dates: start: 20180129, end: 20180130
  7. E KEPPRA [Concomitant]
     Active Substance: LEVETIRACETAM
     Route: 048
     Dates: start: 20180203, end: 20180219
  8. TEGRETOL [Concomitant]
     Active Substance: CARBAMAZEPINE
     Indication: PRODUCT USED FOR UNKNOWN INDICATION
     Route: 048
     Dates: start: 20180114, end: 20180117
  9. HALCION [Concomitant]
     Active Substance: TRIAZOLAM
     Indication: PRODUCT USED FOR UNKNOWN INDICATION
     Route: 065
     Dates: start: 20180110, end: 20180124
  10. THEO?DUR [Concomitant]
     Active Substance: THEOPHYLLINE ANHYDROUS
     Indication: ASTHMA
     Route: 065
     Dates: end: 20180129
  11. E KEPPRA [Concomitant]
     Active Substance: LEVETIRACETAM
     Indication: SEIZURE
     Route: 042
     Dates: start: 20180110, end: 20180115
  12. E KEPPRA [Concomitant]
     Active Substance: LEVETIRACETAM
     Route: 048
     Dates: start: 20180117, end: 20180202
  13. TEGRETOL [Concomitant]
     Active Substance: CARBAMAZEPINE
     Dosage: UNKNOWN
     Route: 048
     Dates: start: 2018
  14. FYCOMPA [Suspect]
     Active Substance: PERAMPANEL
     Route: 048
     Dates: start: 20180131, end: 20180202
  15. FYCOMPA [Suspect]
     Active Substance: PERAMPANEL
     Route: 048
     Dates: start: 20180203, end: 20180219
  16. HALCION [Concomitant]
     Active Substance: TRIAZOLAM
     Route: 065
     Dates: start: 20180125, end: 20180130
  17. EXCEGRAN [Concomitant]
     Active Substance: ZONISAMIDE
     Indication: PRODUCT USED FOR UNKNOWN INDICATION
     Route: 048
     Dates: start: 20180112, end: 20180125
  18. GLYCERIN. [Concomitant]
     Active Substance: GLYCERIN
     Indication: PRODUCT USED FOR UNKNOWN INDICATION
     Route: 065
     Dates: start: 20180110, end: 20180113
  19. FYCOMPA [Suspect]
     Active Substance: PERAMPANEL
     Route: 048
     Dates: start: 20180114, end: 20180124
  20. HALCION [Concomitant]
     Active Substance: TRIAZOLAM
     Route: 065
     Dates: start: 20180131, end: 20180131
  21. FYCOMPA [Suspect]
     Active Substance: PERAMPANEL
     Route: 048
     Dates: start: 20180125, end: 20180128
  22. E KEPPRA [Concomitant]
     Active Substance: LEVETIRACETAM
     Route: 042
     Dates: start: 20180116, end: 20180116

REACTIONS (3)
  - Persecutory delusion [Recovered/Resolved]
  - Aggression [Recovered/Resolved]
  - Suicidal ideation [Recovered/Resolved]

NARRATIVE: CASE EVENT DATE: 20180116
